FAERS Safety Report 11103497 (Version 1)
Quarter: 2015Q2

REPORT INFORMATION
  Report Type: Spontaneous
  Country: FR (occurrence: FR)
  Receive Date: 20150511
  Receipt Date: 20150511
  Transmission Date: 20150821
  Serious: Yes (Other)
  Sender: FDA-Public Use
  Company Number: FR-GLAXOSMITHKLINE-FR2015061635

PATIENT

DRUGS (8)
  1. NICOTINE. [Suspect]
     Active Substance: NICOTINE
     Indication: SMOKING CESSATION THERAPY
     Dosage: 2 MG, UNK
     Route: 065
     Dates: start: 2012
  2. NICOTINE. [Suspect]
     Active Substance: NICOTINE
     Route: 065
     Dates: start: 2012
  3. NICOTINE. [Suspect]
     Active Substance: NICOTINE
     Route: 065
     Dates: start: 2012
  4. NICOTINE. [Suspect]
     Active Substance: NICOTINE
     Route: 065
     Dates: start: 2012
  5. NICOTINE. [Suspect]
     Active Substance: NICOTINE
     Route: 065
     Dates: start: 2012
  6. NICOTINE. [Suspect]
     Active Substance: NICOTINE
     Dosage: DOSAGE FORM: INHALATION
     Route: 065
     Dates: start: 2012
  7. NICOTINE. [Suspect]
     Active Substance: NICOTINE
     Route: 065
     Dates: start: 2012
  8. NICOTINE. [Suspect]
     Active Substance: NICOTINE
     Route: 065
     Dates: start: 2012

REACTIONS (2)
  - Incorrect drug administration duration [Unknown]
  - Nicotine dependence [Unknown]
